FAERS Safety Report 9272023 (Version 2)
Quarter: 2013Q2

REPORT INFORMATION
  Report Type: Spontaneous
  Country: US (occurrence: US)
  Receive Date: 20130506
  Receipt Date: 20130515
  Transmission Date: 20140414
  Serious: Yes (Other)
  Sender: FDA-Public Use
  Company Number: US-TARO-2013P1005194

PATIENT
  Age: 32 Year
  Sex: Female
  Weight: 68.04 kg

DRUGS (4)
  1. WARFARIN SODIUM TABLETS USP 5MG [Suspect]
     Indication: PULMONARY EMBOLISM
     Route: 048
     Dates: start: 20130123
  2. WARFARIN SODIUM TABLETS USP 5MG [Suspect]
     Indication: PULMONARY EMBOLISM
     Route: 048
     Dates: start: 20130222
  3. WARFARIN SODIUM TABLETS USP 5MG [Suspect]
     Indication: PULMONARY EMBOLISM
     Route: 048
     Dates: start: 20130405
  4. WARFARIN SODIUM TABLETS USP 5MG [Suspect]
     Indication: PULMONARY EMBOLISM
     Route: 048
     Dates: start: 20130412, end: 20130423

REACTIONS (2)
  - International normalised ratio fluctuation [Not Recovered/Not Resolved]
  - Product quality issue [Not Recovered/Not Resolved]
